FAERS Safety Report 12709127 (Version 4)
Quarter: 2017Q2

REPORT INFORMATION
  Report Type: Spontaneous
  Country: US (occurrence: US)
  Receive Date: 20160901
  Receipt Date: 20170407
  Transmission Date: 20170830
  Serious: Yes (Other)
  Sender: FDA-Public Use
  Company Number: US-BAYER-2016-170043

PATIENT
  Age: 52 Year
  Sex: Female
  Weight: 56.69 kg

DRUGS (1)
  1. MIRENA [Suspect]
     Active Substance: LEVONORGESTREL
     Indication: CONTRACEPTION
     Dosage: 20 MCG/24HR, CONT
     Route: 015
     Dates: start: 20100119, end: 20140812

REACTIONS (1)
  - Embedded device [None]

NARRATIVE: CASE EVENT DATE: 20140723
